FAERS Safety Report 19785748 (Version 1)
Quarter: 2021Q3

REPORT INFORMATION
  Report Type: Spontaneous
  Country: CN (occurrence: CN)
  Receive Date: 20210903
  Receipt Date: 20210903
  Transmission Date: 20211014
  Serious: Yes (Other)
  Sender: FDA-Public Use
  Company Number: NVSC2021CN197243

PATIENT
  Age: 92 Year
  Sex: Male

DRUGS (2)
  1. ZOLEDRONIC ACID [Suspect]
     Active Substance: ZOLEDRONIC ACID
     Indication: OSTEOPOROSIS
     Dosage: 5 MG, UNKNOWN
     Route: 041
     Dates: start: 20200718
  2. TYLENOL [Concomitant]
     Active Substance: ACETAMINOPHEN
     Indication: PYREXIA
     Dosage: UNK 325 MG PLUS 30 MG PLUS 15 MG MG PLUS 2 MG
     Route: 065

REACTIONS (1)
  - Drug-induced liver injury [Recovering/Resolving]
